FAERS Safety Report 21392263 (Version 3)
Quarter: 2022Q4

REPORT INFORMATION
  Report Type: Spontaneous
  Country: US (occurrence: US)
  Receive Date: 20220929
  Receipt Date: 20221107
  Transmission Date: 20230112
  Serious: Yes (Other)
  Sender: FDA-Public Use
  Company Number: US-JNJFOC-20220946885

PATIENT
  Age: 72 Year
  Sex: Female

DRUGS (1)
  1. TYLENOL SINUS SEVERE [Suspect]
     Active Substance: ACETAMINOPHEN\GUAIFENESIN\PHENYLEPHRINE HYDROCHLORIDE
     Indication: Nasal congestion
     Dosage: 1 TABLET WHENEVER NEEDED
     Route: 048
     Dates: start: 20220920

REACTIONS (5)
  - Foreign body in throat [Recovered/Resolved]
  - Product solubility abnormal [Unknown]
  - Incorrect dose administered [Recovered/Resolved]
  - Inappropriate schedule of product administration [Recovered/Resolved]
  - Dysgeusia [Unknown]

NARRATIVE: CASE EVENT DATE: 20220920
